FAERS Safety Report 15440545 (Version 1)
Quarter: 2018Q3

REPORT INFORMATION
  Report Type: Spontaneous
  Country: AU (occurrence: AU)
  Receive Date: 20180928
  Receipt Date: 20180928
  Transmission Date: 20181010
  Serious: Yes (Hospitalization, Other)
  Sender: FDA-Public Use
  Company Number: AU-IMPAX LABORATORIES, INC-2018-IPXL-03101

PATIENT
  Age: 55 Year
  Sex: Female

DRUGS (1)
  1. METFORMIN HYDROCHLORIDE ER [Suspect]
     Active Substance: METFORMIN HYDROCHLORIDE
     Indication: INTENTIONAL OVERDOSE
     Dosage: 132 G, UNK
     Route: 065

REACTIONS (3)
  - Lactic acidosis [Recovering/Resolving]
  - Anuria [Recovering/Resolving]
  - Intentional overdose [Recovering/Resolving]
